FAERS Safety Report 5901620-5 (Version None)
Quarter: 2008Q3

REPORT INFORMATION
  Report Type: 
  Country: None (occurrence: None)
  Receive Date: 20080926
  Receipt Date: 20080926
  Transmission Date: 20090109
  Serious: Yes (Hospitalization)
  Sender: FDA-Public Use
  Company Number: None

PATIENT
  Age: 78 Year
  Sex: Male

DRUGS (1)
  1. MERREM [Suspect]
     Indication: INFECTION
     Dosage: 1 GM EVERY 8 HOURS IV
     Route: 042
     Dates: start: 20080913, end: 20080917

REACTIONS (1)
  - DERMATITIS BULLOUS [None]
